FAERS Safety Report 6878645-9 (Version None)
Quarter: 2010Q3

REPORT INFORMATION
  Report Type: 
  Country: None (occurrence: None)
  Receive Date: 20100728
  Receipt Date: 20100721
  Transmission Date: 20110219
  Serious: Yes (Hospitalization)
  Sender: FDA-Public Use
  Company Number: A0871682A

PATIENT
  Age: 40 Year
  Sex: Female
  Weight: 41.8 kg

DRUGS (7)
  1. LAMOTRIGINE [Suspect]
     Indication: EPILEPSY
     Dosage: 200MG TWICE PER DAY
     Route: 048
  2. LAMOTRIGINE [Suspect]
     Dosage: 200MG TWICE PER DAY
     Route: 048
  3. LAMICTAL [Suspect]
     Indication: EPILEPSY
     Route: 048
     Dates: start: 19950101
  4. PHENOBARBITAL [Concomitant]
  5. KEPPRA [Concomitant]
  6. THYROID MEDICATION [Concomitant]
  7. ATIVAN [Concomitant]

REACTIONS (21)
  - ABDOMINAL PAIN [None]
  - COORDINATION ABNORMAL [None]
  - DEPRESSION [None]
  - DIPLOPIA [None]
  - DIZZINESS [None]
  - DYSGEUSIA [None]
  - ERYTHEMA [None]
  - FATIGUE [None]
  - FEAR [None]
  - FOOD AVERSION [None]
  - ILL-DEFINED DISORDER [None]
  - INCREASED TENDENCY TO BRUISE [None]
  - INSOMNIA [None]
  - LOGORRHOEA [None]
  - MUSCLE SPASMS [None]
  - OCULAR HYPERAEMIA [None]
  - SPEECH DISORDER [None]
  - STATUS EPILEPTICUS [None]
  - SUICIDAL IDEATION [None]
  - VERTIGO [None]
  - VOMITING [None]
